FAERS Safety Report 19007800 (Version 1)
Quarter: 2021Q1

REPORT INFORMATION
  Report Type: Spontaneous
  Country: FR (occurrence: FR)
  Receive Date: 20210315
  Receipt Date: 20210315
  Transmission Date: 20210420
  Serious: Yes (Hospitalization)
  Sender: FDA-Public Use
  Company Number: FR-PFIZER INC-2021232303

PATIENT
  Age: 56 Year
  Sex: Male

DRUGS (5)
  1. LOXEN [NICARDIPINE HYDROCHLORIDE] [Concomitant]
     Active Substance: NICARDIPINE HYDROCHLORIDE
     Dosage: 1 DF, 1X/DAY AS NEEDED
     Route: 048
     Dates: start: 20200710
  2. NIVOLUMAB [Concomitant]
     Active Substance: NIVOLUMAB
     Route: 042
     Dates: start: 20200602
  3. IMOVANE [Concomitant]
     Active Substance: ZOPICLONE
     Dosage: 1 DF, 1X/DAY
     Route: 048
     Dates: start: 20200706, end: 20200715
  4. INLYTA [Suspect]
     Active Substance: AXITINIB
     Indication: RENAL CANCER
     Dosage: 2 DF, 1X/DAY
     Route: 048
     Dates: start: 20200701, end: 20200710
  5. ALPRAZOLAM. [Concomitant]
     Active Substance: ALPRAZOLAM
     Dosage: 0.5 MG, 1X/DAY
     Route: 048
     Dates: start: 20200706, end: 20200710

REACTIONS (2)
  - Hypertension [Recovered/Resolved]
  - Malaise [Recovered/Resolved]

NARRATIVE: CASE EVENT DATE: 20200710
